FAERS Safety Report 5528814-5 (Version None)
Quarter: 2007Q4

REPORT INFORMATION
  Report Type: 
  Country: None (occurrence: None)
  Receive Date: 20071129
  Receipt Date: 20071119
  Transmission Date: 20080405
  Serious: Yes (Hospitalization)
  Sender: FDA-Public Use
  Company Number: DE-AVENTIS-200712845DE

PATIENT
  Age: 50 Year
  Sex: Female
  Weight: 58 kg

DRUGS (6)
  1. DOCETAXEL [Suspect]
     Indication: BREAST CANCER
     Route: 042
     Dates: start: 20070524, end: 20070712
  2. FLUOROURACIL [Suspect]
     Indication: BREAST CANCER
     Route: 042
     Dates: start: 20070315, end: 20070502
  3. EPIRUBICIN [Suspect]
     Indication: BREAST CANCER
     Dates: start: 20070315, end: 20070502
  4. CYCLOPHOSPHAMIDE [Suspect]
     Indication: BREAST CANCER
     Route: 042
     Dates: start: 20070315, end: 20070502
  5. GEMCITABINE [Suspect]
     Indication: BREAST CANCER
     Route: 042
     Dates: start: 20070524, end: 20070719
  6. ZOMETA [Concomitant]
     Route: 042
     Dates: start: 20070523

REACTIONS (1)
  - IMPAIRED HEALING [None]
